FAERS Safety Report 6240019-1 (Version None)
Quarter: 2009Q2

REPORT INFORMATION
  Report Type: 
  Country: None (occurrence: None)
  Receive Date: 20090623
  Receipt Date: 20090619
  Transmission Date: 20091009
  Serious: Yes (Death)
  Sender: FDA-Public Use
  Company Number: PHHY2009JP11023

PATIENT
  Sex: Male
  Weight: 55 kg

DRUGS (6)
  1. DIOVAN T30230+TAB+HY [Suspect]
     Indication: HYPERTENSION
     Dosage: 80 MG, QD
     Route: 048
     Dates: start: 20071024, end: 20080425
  2. ARTIST [Concomitant]
     Indication: HYPERTENSION
     Dosage: 2.5 MG
     Route: 048
     Dates: start: 20080311
  3. INDERAL [Concomitant]
     Dosage: 20 MG
     Route: 048
     Dates: start: 20080312, end: 20080425
  4. BLOPRESS [Concomitant]
     Indication: HYPERTENSION
     Dosage: 4 MG
     Route: 048
     Dates: start: 20070725, end: 20071023
  5. WARFARIN SODIUM [Concomitant]
     Dosage: 3 MG
     Route: 048
     Dates: end: 20080425
  6. ASPIRIN [Concomitant]
     Dosage: 100 MG
     Route: 048
     Dates: end: 20080425

REACTIONS (1)
  - DEATH [None]
